FAERS Safety Report 19578837 (Version 1)
Quarter: 2021Q3

REPORT INFORMATION
  Report Type: Spontaneous
  Country: FR (occurrence: FR)
  Receive Date: 20210720
  Receipt Date: 20210720
  Transmission Date: 20211014
  Serious: Yes (Death, Other)
  Sender: FDA-Public Use
  Company Number: FR-AUROBINDO-AUR-APL-2021-030358

PATIENT
  Sex: Male
  Weight: .85 kg

DRUGS (1)
  1. ATENOLOL. [Suspect]
     Active Substance: ATENOLOL
     Indication: CARDIAC VALVE DISEASE
     Dosage: UNK
     Route: 048

REACTIONS (2)
  - Growth retardation [Fatal]
  - Premature delivery [Fatal]

NARRATIVE: CASE EVENT DATE: 20210608
